FAERS Safety Report 5529717-2 (Version None)
Quarter: 2007Q4

REPORT INFORMATION
  Report Type: 
  Country: None (occurrence: None)
  Receive Date: 20071129
  Receipt Date: 20070510
  Transmission Date: 20080405
  Serious: No
  Sender: FDA-Public Use
  Company Number: US-ABBOTT-06P-163-0324394-00

PATIENT
  Sex: Female
  Weight: 76.272 kg

DRUGS (1)
  1. MERIDIA [Suspect]
     Indication: WEIGHT CONTROL
     Route: 048
     Dates: start: 20051102, end: 20051202

REACTIONS (2)
  - CONVULSION [None]
  - DIZZINESS [None]
